FAERS Safety Report 15159137 (Version 1)
Quarter: 2018Q3

REPORT INFORMATION
  Report Type: Spontaneous
  Country: FR (occurrence: FR)
  Receive Date: 20180718
  Receipt Date: 20180718
  Transmission Date: 20181010
  Serious: Yes (Other)
  Sender: FDA-Public Use
  Company Number: FR-TEVA-2018-FR-927993

PATIENT
  Age: 36 Year
  Sex: Male
  Weight: 67 kg

DRUGS (5)
  1. CLOZAPINE. [Suspect]
     Active Substance: CLOZAPINE
     Indication: SCHIZOPHRENIA
     Dosage: 1 DOSAGE FORMS DAILY;
     Route: 048
     Dates: start: 20160803, end: 20180313
  2. MOVICOL [Concomitant]
     Active Substance: POLYETHYLENE GLYCOL 3350\POTASSIUM CHLORIDE\SODIUM BICARBONATE\SODIUM CHLORIDE
     Route: 065
  3. VALIUM [Concomitant]
     Active Substance: DIAZEPAM
     Route: 065
  4. LEPTICUR [Concomitant]
     Active Substance: TROPATEPINE HYDROCHLORIDE
     Route: 065
  5. THERALENE [Concomitant]
     Active Substance: TRIMEPRAZINE
     Route: 065

REACTIONS (3)
  - Myoclonus [Recovered/Resolved]
  - Encephalopathy [Recovered/Resolved]
  - Seizure [Recovered/Resolved]

NARRATIVE: CASE EVENT DATE: 20160925
